FAERS Safety Report 20591744 (Version 1)
Quarter: 2022Q1

REPORT INFORMATION
  Report Type: Spontaneous
  Country: US (occurrence: US)
  Receive Date: 20220314
  Receipt Date: 20220314
  Transmission Date: 20220423
  Serious: Yes (Other)
  Sender: FDA-Public Use
  Company Number: US-BRISTOL-MYERS SQUIBB COMPANY-BMS-2022-036566

PATIENT
  Age: 71 Year
  Sex: Female
  Weight: 45.3 kg

DRUGS (2)
  1. ELIQUIS [Suspect]
     Active Substance: APIXABAN
     Indication: Arterial thrombosis
     Dosage: 5 MILLIGRAM, BID
     Route: 048
     Dates: start: 202111, end: 20220210
  2. VITAMINS NOS [Concomitant]
     Active Substance: VITAMINS
     Indication: Product used for unknown indication
     Route: 065

REACTIONS (2)
  - Coeliac disease [Unknown]
  - Intentional product use issue [Unknown]
